FAERS Safety Report 9933645 (Version 2)
Quarter: 2014Q1

REPORT INFORMATION
  Report Type: Report from Study
  Country: US (occurrence: US)
  Receive Date: 20140228
  Receipt Date: 20140228
  Transmission Date: 20141002
  Serious: No
  Sender: FDA-Public Use
  Company Number: US-MYLANLABS-2013S1027679

PATIENT
  Sex: Female

DRUGS (3)
  1. AMNESTEEM CAPSULES [Suspect]
     Indication: ACNE
     Dates: start: 2013, end: 20131206
  2. CLARAVIS [Suspect]
     Indication: ACNE
     Dates: start: 2013, end: 2013
  3. CLARAVIS [Suspect]
     Indication: ACNE
     Dates: start: 20130730, end: 2013

REACTIONS (3)
  - Adverse event [Not Recovered/Not Resolved]
  - Myalgia [Not Recovered/Not Resolved]
  - Epistaxis [Not Recovered/Not Resolved]
